FAERS Safety Report 7834890-7 (Version None)
Quarter: 2011Q4

REPORT INFORMATION
  Report Type: 
  Country: None (occurrence: None)
  Receive Date: 20111024
  Receipt Date: 20111011
  Transmission Date: 20120403
  Serious: Yes (Hospitalization)
  Sender: FDA-Public Use
  Company Number: US-BAYER-2011-060925

PATIENT
  Age: 18 Year
  Sex: Female
  Weight: 109 kg

DRUGS (3)
  1. MOTRIN [Concomitant]
     Indication: BACK PAIN
     Dosage: UNK
     Route: 048
     Dates: start: 20090216
  2. TORADOL [Concomitant]
     Dosage: UNK
     Route: 030
     Dates: start: 20090216
  3. YAZ [Suspect]
     Dosage: UNK
     Route: 048
     Dates: start: 20090101, end: 20090701

REACTIONS (15)
  - PULMONARY EMBOLISM [None]
  - PAIN IN EXTREMITY [None]
  - ANXIETY [None]
  - INJURY [None]
  - PAIN [None]
  - THROMBOSIS [None]
  - ABDOMINAL PAIN [None]
  - MENTAL DISORDER [None]
  - CHOLECYSTITIS CHRONIC [None]
  - GALLBLADDER DISORDER [None]
  - PANCREATITIS [None]
  - DEEP VEIN THROMBOSIS [None]
  - CHEST PAIN [None]
  - EMOTIONAL DISTRESS [None]
  - FEAR [None]
